FAERS Safety Report 24016006 (Version 4)
Quarter: 2025Q2

REPORT INFORMATION
  Report Type: Spontaneous
  Country: US (occurrence: US)
  Receive Date: 20240626
  Receipt Date: 20250506
  Transmission Date: 20250717
  Serious: Yes (Hospitalization)
  Sender: DAIICHI
  Company Number: US-DAIICHI SANKYO, INC.-DSU-2024-129138AA

PATIENT
  Age: 30 Year
  Sex: Male

DRUGS (2)
  1. VANFLYTA [Suspect]
     Active Substance: QUIZARTINIB DIHYDROCHLORIDE
     Indication: Acute myelomonocytic leukaemia
     Dosage: 26.5 MG, QD
     Route: 048
     Dates: start: 20240126
  2. VANFLYTA [Suspect]
     Active Substance: QUIZARTINIB DIHYDROCHLORIDE
     Dosage: 17.7 MG, QD
     Route: 048
     Dates: start: 20240515

REACTIONS (3)
  - Unevaluable event [Not Recovered/Not Resolved]
  - Therapy change [Not Recovered/Not Resolved]
  - Refusal of treatment by patient [Unknown]

NARRATIVE: CASE EVENT DATE: 20240621
